FAERS Safety Report 11322047 (Version 11)
Quarter: 2018Q4

REPORT INFORMATION
  Report Type: Spontaneous
  Country: US (occurrence: US)
  Receive Date: 20150729
  Receipt Date: 20181025
  Transmission Date: 20190204
  Serious: Yes (Hospitalization, Other)
  Sender: FDA-Public Use
  Company Number: US-PFIZER INC-2015248682

PATIENT
  Age: 50 Year
  Sex: Female
  Weight: 73.47 kg

DRUGS (15)
  1. ALPRAZOLAM. [Suspect]
     Active Substance: ALPRAZOLAM
     Indication: ANXIETY
     Dosage: UNK, 3X/DAY (FOR 20 YEARS)
     Route: 048
  2. OXYCODONE AND ACETAMINOPHEN [Concomitant]
     Active Substance: ACETAMINOPHEN\OXYCODONE HYDROCHLORIDE
     Indication: PAIN
     Dosage: UNK, 3X/DAY [OXYCODONE 10MG]-[ACETAMINOPHEN:325MG] (2 THREE TIMES A DAY)
     Route: 048
  3. METOPROLOL. [Concomitant]
     Active Substance: METOPROLOL
     Indication: HYPERTENSION
     Dosage: 50 MG, 1X/DAY
  4. ALPRAZOLAM. [Suspect]
     Active Substance: ALPRAZOLAM
     Indication: PANIC ATTACK
     Dosage: 1 MG, 3X/DAY
     Route: 048
     Dates: start: 1999
  5. PERCOCET [Concomitant]
     Active Substance: ACETAMINOPHEN\OXYCODONE HYDROCHLORIDE
     Indication: PAIN
     Dosage: 2 DF, 3X/DAY (OXYCODONE HYDROCHLORIDE: 10 MG; PARACETAMOL: 325 MG)
     Route: 048
     Dates: start: 20041231
  6. BUPROPION. [Concomitant]
     Active Substance: BUPROPION
     Indication: DEPRESSION
  7. ALPRAZOLAM. [Suspect]
     Active Substance: ALPRAZOLAM
     Indication: PAIN
     Dosage: 1 MG, 3X/DAY
     Route: 048
     Dates: start: 1998
  8. ALPRAZOLAM. [Suspect]
     Active Substance: ALPRAZOLAM
     Dosage: UNK, 2X/DAY (TAKING 2 A DAY)
     Route: 048
  9. ALPRAZOLAM. [Suspect]
     Active Substance: ALPRAZOLAM
     Dosage: 1 MG, FROM 13MAR1998 - EXPIRY DATE: 10SEP2019 AT 01 MG, TABLET, THREE OR TWO TIMES A DAY
     Route: 048
     Dates: start: 19980313
  10. BUPROPION. [Concomitant]
     Active Substance: BUPROPION
     Indication: BLOOD PRESSURE MEASUREMENT
     Dosage: 300 MG, 1X/DAY
  11. VITAMIN D [COLECALCIFEROL] [Concomitant]
     Indication: VITAMIN D DEFICIENCY
     Dosage: UNK
  12. XARELTO [Concomitant]
     Active Substance: RIVAROXABAN
     Indication: ANTICOAGULANT THERAPY
     Dosage: 20 MG, 1X/DAY (ONE TABLET AT NIGHT)
     Dates: start: 201512
  13. ALPRAZOLAM. [Suspect]
     Active Substance: ALPRAZOLAM
     Indication: DEPRESSION
     Dosage: 1 MG, 3X/DAY
     Route: 048
  14. OXYCONTIN [Concomitant]
     Active Substance: OXYCODONE HYDROCHLORIDE
     Indication: PAIN
     Dosage: 15 MG, 2X/DAY
     Route: 048
  15. ALPRAZOLAM. [Suspect]
     Active Substance: ALPRAZOLAM
     Indication: NECK INJURY
     Dosage: 1 DF, 1X/DAY
     Route: 048

REACTIONS (13)
  - Intentional underdose [Unknown]
  - Hypertension [Unknown]
  - Malaise [Unknown]
  - Feeding disorder [Unknown]
  - Feeling abnormal [Unknown]
  - Pulmonary thrombosis [Unknown]
  - Withdrawal syndrome [Unknown]
  - Insomnia [Not Recovered/Not Resolved]
  - Feeling jittery [Unknown]
  - Myocardial infarction [Unknown]
  - Vomiting [Recovered/Resolved]
  - Asthenia [Unknown]
  - Nausea [Unknown]

NARRATIVE: CASE EVENT DATE: 20150325
